FAERS Safety Report 19930576 (Version 2)
Quarter: 2023Q4

REPORT INFORMATION
  Report Type: Spontaneous
  Country: US (occurrence: US)
  Receive Date: 20211008
  Receipt Date: 20231004
  Transmission Date: 20240110
  Serious: Yes (Hospitalization, Other)
  Sender: FDA-Public Use
  Company Number: US-35507-2021-18602

PATIENT
  Age: 15 Year
  Sex: Female

DRUGS (2)
  1. SERTRALINE [Interacting]
     Active Substance: SERTRALINE HYDROCHLORIDE
     Indication: Product used for unknown indication
     Dosage: UNK
     Route: 048
  2. BUPROPION [Interacting]
     Active Substance: BUPROPION
     Indication: Product used for unknown indication
     Dosage: UNK
     Route: 048

REACTIONS (7)
  - Generalised tonic-clonic seizure [Recovering/Resolving]
  - Anterograde amnesia [Recovering/Resolving]
  - Areflexia [Recovering/Resolving]
  - Myoclonus [Recovering/Resolving]
  - Metabolic encephalopathy [Recovering/Resolving]
  - Drug interaction [Unknown]
  - Intentional overdose [Unknown]
